FAERS Safety Report 14981062 (Version 2)
Quarter: 2018Q3

REPORT INFORMATION
  Report Type: Spontaneous
  Country: US (occurrence: US)
  Receive Date: 20180606
  Receipt Date: 20180906
  Transmission Date: 20181010
  Serious: No
  Sender: FDA-Public Use
  Company Number: US-PTC THERAPEUTICS, INC.-US-2018PTC000264

PATIENT

DRUGS (2)
  1. EMFLAZA [Suspect]
     Active Substance: DEFLAZACORT
     Dosage: 22.5 MG, QD
     Route: 048
     Dates: start: 20170720
  2. EMFLAZA [Suspect]
     Active Substance: DEFLAZACORT
     Indication: DUCHENNE MUSCULAR DYSTROPHY
     Dosage: 22.5 MG, QD
     Route: 048
     Dates: start: 20170619

REACTIONS (3)
  - Fall [Recovered/Resolved]
  - Asthenia [Not Recovered/Not Resolved]
  - Off label use [Unknown]

NARRATIVE: CASE EVENT DATE: 201801
